FAERS Safety Report 4686650-6 (Version None)
Quarter: 2005Q2

REPORT INFORMATION
  Report Type: 
  Country: None (occurrence: None)
  Receive Date: 20050609
  Receipt Date: 20050531
  Transmission Date: 20051028
  Serious: Yes (Hospitalization)
  Sender: FDA-Public Use
  Company Number: 2005PK00952

PATIENT
  Sex: Male

DRUGS (3)
  1. GEFITINIB [Suspect]
     Indication: NON-SMALL CELL LUNG CANCER STAGE IV
     Route: 048
     Dates: start: 20040901, end: 20050109
  2. TORSEMIDE [Concomitant]
     Route: 048
     Dates: start: 20040901
  3. FORTECORTIN [Concomitant]
     Route: 048
     Dates: start: 20050127, end: 20050209

REACTIONS (5)
  - ABDOMINAL DISTENSION [None]
  - CARDIAC FAILURE [None]
  - DYSPNOEA [None]
  - FACE OEDEMA [None]
  - OEDEMA PERIPHERAL [None]
